FAERS Safety Report 9000363 (Version 2)
Quarter: 2013Q1

REPORT INFORMATION
  Report Type: Spontaneous
  Country: US (occurrence: None)
  Receive Date: 20121221
  Receipt Date: 20130326
  Transmission Date: 20140127
  Serious: Yes (Death)
  Sender: FDA-Public Use
  Company Number: JPI-P-026973

PATIENT
  Age: 95 Year
  Sex: Female

DRUGS (1)
  1. XYREM [Suspect]
     Indication: NARCOLEPSY
     Dosage: (UNKNOWN, 2 IN 1 D) , ORAL
     Route: 048
     Dates: start: 2003

REACTIONS (2)
  - Confusional state [None]
  - Hepatic cancer [None]
